FAERS Safety Report 6907410-9 (Version None)
Quarter: 2010Q3

REPORT INFORMATION
  Report Type: 
  Country: None (occurrence: None)
  Receive Date: 20100805
  Receipt Date: 20100726
  Transmission Date: 20110219
  Serious: Yes (Life-Threatening)
  Sender: FDA-Public Use
  Company Number: FR-JNJFOC-20100800054

PATIENT
  Sex: Female

DRUGS (3)
  1. IXPRIM [Suspect]
     Indication: OSTEOARTHRITIS
     Route: 048
  2. FELDENE [Suspect]
     Indication: OSTEOARTHRITIS
     Route: 065
  3. LODOZ [Concomitant]
     Route: 065

REACTIONS (1)
  - CAPILLARY LEAK SYNDROME [None]
